FAERS Safety Report 23281797 (Version 1)
Quarter: 2023Q4

REPORT INFORMATION
  Report Type: Spontaneous
  Country: JP (occurrence: JP)
  Receive Date: 20231211
  Receipt Date: 20231211
  Transmission Date: 20240109
  Serious: Yes (Hospitalization)
  Sender: FDA-Public Use
  Company Number: JP-DSJP-DSJ-2023-147281

PATIENT
  Age: 7 Decade
  Sex: Female

DRUGS (1)
  1. ENHERTU [Suspect]
     Active Substance: FAM-TRASTUZUMAB DERUXTECAN-NXKI
     Indication: HER2 low breast cancer
     Dosage: UNK
     Route: 065
     Dates: start: 20230915, end: 2023

REACTIONS (3)
  - Pleural effusion [Unknown]
  - Disease progression [Unknown]
  - Malaise [Unknown]

NARRATIVE: CASE EVENT DATE: 20230101
